FAERS Safety Report 10039142 (Version 1)
Quarter: 2014Q1

REPORT INFORMATION
  Report Type: Spontaneous
  Country: TR (occurrence: TR)
  Receive Date: 20140326
  Receipt Date: 20140326
  Transmission Date: 20141002
  Serious: Yes (Death, Other)
  Sender: FDA-Public Use
  Company Number: PHHY2014TR034511

PATIENT
  Age: 16 Year
  Sex: Male

DRUGS (3)
  1. CICLOSPORIN [Suspect]
     Indication: IMMUNOSUPPRESSION
  2. PREDNISOLONE [Suspect]
     Indication: IMMUNOSUPPRESSION
  3. SIROLIMUS [Suspect]
     Indication: IMMUNOSUPPRESSION

REACTIONS (11)
  - Cardiac arrest [Fatal]
  - Pericarditis [Fatal]
  - Transplant rejection [Unknown]
  - Renal impairment [Unknown]
  - Renal failure chronic [Unknown]
  - Kidney fibrosis [Unknown]
  - Tubulointerstitial nephritis [Unknown]
  - Arteriosclerosis [Unknown]
  - Nephropathy toxic [Unknown]
  - Atrophy [Unknown]
  - Lupus nephritis [Unknown]
